FAERS Safety Report 5130152-X (Version None)
Quarter: 2006Q4

REPORT INFORMATION
  Report Type: 
  Country: None (occurrence: None)
  Receive Date: 20061013
  Receipt Date: 20060809
  Transmission Date: 20070319
  Serious: Yes (Death)
  Sender: FDA-Public Use
  Company Number: 2006065331

PATIENT
  Age: 61 Year
  Sex: Male

DRUGS (1)
  1. BEXTRA [Suspect]
     Dosage: (20 MG)

REACTIONS (14)
  - ASTHENIA [None]
  - CARDIAC FAILURE CONGESTIVE [None]
  - CARDIO-RESPIRATORY ARREST [None]
  - GASTROINTESTINAL HAEMORRHAGE [None]
  - HEPATIC ENCEPHALOPATHY [None]
  - HEPATIC FAILURE [None]
  - HYPOKALAEMIA [None]
  - HYPONATRAEMIA [None]
  - HYPOTENSION [None]
  - ORTHOSTATIC HYPOTENSION [None]
  - PORTAL HYPERTENSION [None]
  - RESPIRATORY DISTRESS [None]
  - SEPSIS [None]
  - SYNCOPE [None]
